FAERS Safety Report 8839022 (Version 1)
Quarter: 2012Q4

REPORT INFORMATION
  Report Type: Spontaneous
  Country: US (occurrence: None)
  Receive Date: 20121011
  Receipt Date: 20121011
  Transmission Date: 20130627
  Serious: No
  Sender: FDA-Public Use
  Company Number: None

PATIENT
  Age: 20 Year
  Sex: Female

DRUGS (2)
  1. DOXYCYCLINE HYCLATE [Suspect]
     Route: 048
     Dates: start: 20121008, end: 20121008
  2. AZITHROMYCIN [Suspect]
     Dosage: 5 day pack was started

REACTIONS (2)
  - Nausea [None]
  - Vomiting [None]
